FAERS Safety Report 4755415-9 (Version None)
Quarter: 2005Q3

REPORT INFORMATION
  Report Type: 
  Country: None (occurrence: None)
  Receive Date: 20050826
  Receipt Date: 20050826
  Transmission Date: 20060218
  Serious: Yes (Hospitalization)
  Sender: FDA-Public Use
  Company Number: None

PATIENT
  Sex: Male
  Weight: 58.9676 kg

DRUGS (4)
  1. OXANDRIN [Suspect]
     Indication: WEIGHT DECREASED
     Dosage: 10 MG PO BID
     Route: 048
     Dates: start: 20050603, end: 20050625
  2. ETHYOL [Concomitant]
  3. CISPLATIN [Concomitant]
  4. TORADOL [Concomitant]

REACTIONS (5)
  - DEHYDRATION [None]
  - NAUSEA [None]
  - PAIN [None]
  - PROCEDURAL COMPLICATION [None]
  - VOMITING [None]
